FAERS Safety Report 6920027-5 (Version None)
Quarter: 2010Q3

REPORT INFORMATION
  Report Type: 
  Country: None (occurrence: None)
  Receive Date: 20100811
  Receipt Date: 20100806
  Transmission Date: 20110219
  Serious: Yes (Other)
  Sender: FDA-Public Use
  Company Number: CHPA2010US12451

PATIENT
  Age: 87 Year
  Sex: Male
  Weight: 90.703 kg

DRUGS (1)
  1. VOLTAREN [Suspect]
     Indication: OSTEOARTHRITIS
     Dosage: 4 G, QID
     Route: 061
     Dates: start: 20100715, end: 20100729

REACTIONS (2)
  - PURULENCE [None]
  - RASH ERYTHEMATOUS [None]
